FAERS Safety Report 26001750 (Version 1)
Quarter: 2025Q4

REPORT INFORMATION
  Report Type: Spontaneous
  Country: US (occurrence: US)
  Receive Date: 20251105
  Receipt Date: 20251105
  Transmission Date: 20260118
  Serious: No
  Sender: GALPHARM INTERNATIONAL
  Company Number: US-PERRIGO-25US008148

PATIENT
  Sex: Male
  Weight: 81.633 kg

DRUGS (4)
  1. FAMOTIDINE [Suspect]
     Active Substance: FAMOTIDINE
     Indication: Gastrooesophageal reflux disease
     Dosage: 20 MG, PRN
     Route: 048
     Dates: start: 2021, end: 20250627
  2. FAMOTIDINE [Suspect]
     Active Substance: FAMOTIDINE
     Dosage: 20 MG, PRN
     Route: 048
  3. PRADAXA [Concomitant]
     Active Substance: DABIGATRAN ETEXILATE MESYLATE
     Indication: Blood disorder
     Dosage: UNKNOWN, UNKNOWN
     Route: 065
  4. LOSARTAN [Concomitant]
     Active Substance: LOSARTAN
     Indication: Hypertension
     Dosage: UNKNOWN, UNKNOWN
     Route: 065
     Dates: start: 202505

REACTIONS (2)
  - Drug ineffective [Unknown]
  - Expired product administered [Unknown]

NARRATIVE: CASE EVENT DATE: 20210101
